FAERS Safety Report 8814708 (Version 1)
Quarter: 2012Q4

REPORT INFORMATION
  Report Type: Spontaneous
  Country: CA (occurrence: None)
  Receive Date: 20120926
  Receipt Date: 20120926
  Transmission Date: 20130627
  Serious: Yes (Hospitalization)
  Sender: FDA-Public Use
  Company Number: B0832135A

PATIENT
  Age: 39 Year
  Sex: Female

DRUGS (9)
  1. NARATRIPTAN [Suspect]
     Route: 048
  2. METHADONE HYDROCHLORIDE [Suspect]
  3. QUETIAPINE [Suspect]
  4. VENLAFAXINE HYDROCHLORIDE [Suspect]
  5. SERTRALINE [Suspect]
  6. ATORVASTATIN CALCIUM [Concomitant]
  7. TRIAMTERENE + HCTZ [Concomitant]
  8. TOPIRAMATE [Concomitant]
  9. BACLOFEN [Concomitant]

REACTIONS (2)
  - Subarachnoid haemorrhage [None]
  - Cerebral vasoconstriction [None]
